FAERS Safety Report 23691802 (Version 1)
Quarter: 2024Q2

REPORT INFORMATION
  Report Type: Other
  Country: IT (occurrence: None)
  Receive Date: 20240401
  Receipt Date: 20240401
  Transmission Date: 20240716
  Serious: Yes (Death, Other)
  Sender: FDA-Public Use
  Company Number: IT-ROCHE-3534767

PATIENT

DRUGS (2)
  1. RITUXIMAB [Suspect]
     Active Substance: RITUXIMAB
     Indication: Aortitis
     Route: 042
  2. PREDNISONE [Concomitant]
     Active Substance: PREDNISONE
     Indication: Aortitis
     Dosage: IQR 25-50 MG/DAY

REACTIONS (12)
  - Cerebrovascular accident [Fatal]
  - Chronic lymphocytic leukaemia [Unknown]
  - Embolism [Unknown]
  - Basal cell carcinoma [Unknown]
  - Urinary tract infection [Unknown]
  - Hypogammaglobulinaemia [Unknown]
  - Herpes zoster [Unknown]
  - Colorectal adenoma [Unknown]
  - Impaired healing [Unknown]
  - Enthesopathy [Unknown]
  - Psoriasis [Unknown]
  - Papillary cystadenoma lymphomatosum [Unknown]
